FAERS Safety Report 7642537-8 (Version None)
Quarter: 2011Q3

REPORT INFORMATION
  Report Type: 
  Country: None (occurrence: None)
  Receive Date: 20110728
  Receipt Date: 20110719
  Transmission Date: 20111222
  Serious: Yes (Other)
  Sender: FDA-Public Use
  Company Number: GB-ASTRAZENECA-2011SE42804

PATIENT
  Age: 24 Year
  Sex: Female

DRUGS (1)
  1. QUETIAPINE [Suspect]
     Indication: BIPOLAR II DISORDER
     Route: 048
     Dates: start: 20110602, end: 20110630

REACTIONS (2)
  - SWELLING FACE [None]
  - LOCAL SWELLING [None]
